FAERS Safety Report 23254059 (Version 1)
Quarter: 2023Q4

REPORT INFORMATION
  Report Type: Other
  Country: FR (occurrence: FR)
  Receive Date: 20231202
  Receipt Date: 20231202
  Transmission Date: 20240110
  Serious: Yes (Hospitalization)
  Sender: FDA-Public Use
  Company Number: None

PATIENT

DRUGS (4)
  1. GABAPENTIN [Suspect]
     Active Substance: GABAPENTIN
     Indication: Drug dependence
     Dosage: 300 MILLIGRAM, TID
     Route: 048
     Dates: start: 2022, end: 20231010
  2. METHADONE HYDROCHLORIDE [Suspect]
     Active Substance: METHADONE HYDROCHLORIDE
     Indication: Drug dependence
     Dosage: 80 MILLIGRAM, QD
     Route: 048
     Dates: start: 202206, end: 20231010
  3. OXAZEPAM [Concomitant]
     Active Substance: OXAZEPAM
     Indication: Drug dependence
     Dosage: 1 DOSAGE FORM
     Route: 048
  4. OMEPRAZOLE [Concomitant]
     Active Substance: OMEPRAZOLE
     Indication: Gastrooesophageal reflux prophylaxis
     Dosage: 1 DOSAGE FORM, QD
     Route: 048

REACTIONS (1)
  - Serotonin syndrome [Recovered/Resolved]

NARRATIVE: CASE EVENT DATE: 20231007
